FAERS Safety Report 9856655 (Version 2)
Quarter: 2014Q2

REPORT INFORMATION
  Report Type: Spontaneous
  Country: JP (occurrence: JP)
  Receive Date: 20140130
  Receipt Date: 20140602
  Transmission Date: 20141212
  Serious: Yes (Death, Other)
  Sender: FDA-Public Use
  Company Number: PHHY2014JP011172

PATIENT
  Age: 66 Year
  Sex: Male

DRUGS (2)
  1. AFINITOR [Suspect]
     Indication: RENAL CELL CARCINOMA
     Dosage: 5 MG, DAILY
     Route: 048
     Dates: start: 20140109
  2. AFINITOR [Suspect]
     Dosage: 5 MG, DAILY
     Route: 048

REACTIONS (2)
  - Renal cancer [Fatal]
  - Blood lactate dehydrogenase increased [Unknown]
